FAERS Safety Report 4649241-9 (Version None)
Quarter: 2005Q2

REPORT INFORMATION
  Report Type: 
  Country: None (occurrence: None)
  Receive Date: 20050429
  Receipt Date: 20050419
  Transmission Date: 20051028
  Serious: Yes (Other)
  Sender: FDA-Public Use
  Company Number: US-JNJFOC-20050100030

PATIENT
  Sex: Male
  Weight: 131.09 kg

DRUGS (17)
  1. REMICADE [Suspect]
     Indication: CROHN'S DISEASE
     Route: 042
  2. NAPROSYN [Suspect]
     Indication: RASH
  3. ASACOL [Concomitant]
  4. PURINETHOL [Concomitant]
  5. PREDNISONE TAB [Concomitant]
  6. PREDNISONE TAB [Concomitant]
  7. PREDNISONE TAB [Concomitant]
  8. AMBIEN [Concomitant]
  9. VERAPAMIL [Concomitant]
  10. PAROXETINE HCL [Concomitant]
  11. DIOVAN HCT [Concomitant]
  12. DIOVAN HCT [Concomitant]
     Dosage: 160/12.5
  13. TOPROL-XL [Concomitant]
  14. METOPROLOL TARTRATE [Concomitant]
  15. HYDROCODONE BITARTRATE [Concomitant]
     Dosage: 5/500
  16. 6-MP [Concomitant]
  17. 6-MP [Concomitant]

REACTIONS (4)
  - DECREASED APPETITE [None]
  - POLYARTHRITIS [None]
  - RASH PRURITIC [None]
  - SLEEP DISORDER [None]
